FAERS Safety Report 13385286 (Version 4)
Quarter: 2017Q3

REPORT INFORMATION
  Report Type: Report from Study
  Country: None (occurrence: US)
  Receive Date: 20170329
  Receipt Date: 20170905
  Transmission Date: 20171127
  Serious: Yes (Other)
  Sender: FDA-Public Use
  Company Number: US-ABBVIE-17K-163-1922852-00

PATIENT
  Sex: Female
  Weight: 61.29 kg

DRUGS (16)
  1. HUMIRA [Suspect]
     Active Substance: ADALIMUMAB
     Route: 058
     Dates: start: 20170804
  2. CALCIUM [Concomitant]
     Active Substance: CALCIUM
     Indication: PRODUCT USED FOR UNKNOWN INDICATION
  3. PHILIPS COLON HEALTH [Concomitant]
     Indication: PRODUCT USED FOR UNKNOWN INDICATION
  4. METAMUCIL [Concomitant]
     Active Substance: PLANTAGO SEED
     Indication: PRODUCT USED FOR UNKNOWN INDICATION
  5. MELATONIN [Concomitant]
     Active Substance: MELATONIN
     Indication: PRODUCT USED FOR UNKNOWN INDICATION
  6. FLAXSEED [Concomitant]
     Active Substance: FLAX SEED
     Indication: PRODUCT USED FOR UNKNOWN INDICATION
  7. SYMBICORT [Concomitant]
     Active Substance: BUDESONIDE\FORMOTEROL FUMARATE DIHYDRATE
     Indication: ASTHMA
  8. HUMIRA [Suspect]
     Active Substance: ADALIMUMAB
     Route: 058
     Dates: start: 201612, end: 2017
  9. FOLIC ACID. [Concomitant]
     Active Substance: FOLIC ACID
     Indication: RHEUMATOID ARTHRITIS
  10. PROAIR HFA [Concomitant]
     Active Substance: ALBUTEROL SULFATE
     Indication: ASTHMA
  11. FISH OIL [Concomitant]
     Active Substance: FISH OIL
     Indication: PRODUCT USED FOR UNKNOWN INDICATION
  12. HUMIRA [Suspect]
     Active Substance: ADALIMUMAB
     Indication: RHEUMATOID ARTHRITIS
     Route: 058
     Dates: start: 2006, end: 201612
  13. METHOTREXATE. [Suspect]
     Active Substance: METHOTREXATE
     Indication: RHEUMATOID ARTHRITIS
     Route: 065
  14. AZELASTINE [Concomitant]
     Active Substance: AZELASTINE
     Indication: ASTHMA
  15. VITAMIN D3 [Concomitant]
     Active Substance: CHOLECALCIFEROL
     Indication: PRODUCT USED FOR UNKNOWN INDICATION
  16. CENTRUM SILVER [Concomitant]
     Active Substance: MINERALS\VITAMINS
     Indication: PRODUCT USED FOR UNKNOWN INDICATION

REACTIONS (13)
  - Limb mass [Not Recovered/Not Resolved]
  - Nasopharyngitis [Unknown]
  - Pain [Recovered/Resolved]
  - Post procedural swelling [Not Recovered/Not Resolved]
  - Pulmonary mass [Recovering/Resolving]
  - Rheumatoid arthritis [Not Recovered/Not Resolved]
  - Chills [Recovering/Resolving]
  - Swelling [Not Recovered/Not Resolved]
  - Exostosis [Recovering/Resolving]
  - Limb mass [Recovered/Resolved]
  - Incision site complication [Unknown]
  - Nasopharyngitis [Recovered/Resolved]
  - Bronchiectasis [Recovering/Resolving]

NARRATIVE: CASE EVENT DATE: 2015
